FAERS Safety Report 5453152-9 (Version None)
Quarter: 2007Q3

REPORT INFORMATION
  Report Type: 
  Country: None (occurrence: None)
  Receive Date: 20070914
  Receipt Date: 20070904
  Transmission Date: 20080115
  Serious: Yes (Other)
  Sender: FDA-Public Use
  Company Number: US-PFIZER INC-2007074303

PATIENT
  Sex: Female
  Weight: 63.636 kg

DRUGS (2)
  1. LYRICA [Suspect]
     Indication: TRIGEMINAL NEURALGIA
  2. ATIVAN [Concomitant]

REACTIONS (2)
  - MANIA [None]
  - VIOLENCE-RELATED SYMPTOM [None]
